FAERS Safety Report 7329784-X (Version None)
Quarter: 2011Q1

REPORT INFORMATION
  Report Type: 
  Country: None (occurrence: None)
  Receive Date: 20110303
  Receipt Date: 20110301
  Transmission Date: 20110831
  Serious: Yes (Other)
  Sender: FDA-Public Use
  Company Number: US-PFIZER INC-2008071145

PATIENT
  Sex: Male

DRUGS (2)
  1. NEURONTIN [Suspect]
     Indication: NERVE INJURY
     Dosage: UNK
     Dates: start: 19960101, end: 20080101
  2. LYRICA [Suspect]
     Dosage: 75 MG, 2X/DAY
     Dates: start: 20080101

REACTIONS (4)
  - SPINAL CORD INJURY [None]
  - PAIN [None]
  - MEMORY IMPAIRMENT [None]
  - DRUG INEFFECTIVE [None]
